FAERS Safety Report 5563158-7 (Version None)
Quarter: 2007Q4

REPORT INFORMATION
  Report Type: 
  Country: None (occurrence: None)
  Receive Date: 20071217
  Receipt Date: 20071214
  Transmission Date: 20080405
  Serious: Yes (Other)
  Sender: FDA-Public Use
  Company Number: B0499823A

PATIENT
  Age: 78 Year
  Sex: Male

DRUGS (1)
  1. AVANDAMET [Suspect]
     Route: 048

REACTIONS (2)
  - CHEST PAIN [None]
  - NORMOCHROMIC NORMOCYTIC ANAEMIA [None]
